FAERS Safety Report 25652385 (Version 3)
Quarter: 2025Q4

REPORT INFORMATION
  Report Type: Report from Study
  Country: CO (occurrence: CO)
  Receive Date: 20250807
  Receipt Date: 20251218
  Transmission Date: 20260117
  Serious: Yes (Other)
  Sender: ROCHE
  Company Number: CO-002147023-NVSC2025CO122578

PATIENT
  Age: 11 Year
  Sex: Female
  Weight: 39 kg

DRUGS (5)
  1. XOLAIR [Suspect]
     Active Substance: OMALIZUMAB
     Indication: Asthma
     Route: 058
     Dates: start: 20250714, end: 20250728
  2. FEXOFENADINE [Concomitant]
     Active Substance: FEXOFENADINE HYDROCHLORIDE
     Indication: Product used for unknown indication
     Dosage: 5 ML, BID (IN THE MORNING AND AT NIGHT)
     Route: 048
  3. FLUTICASONE FUROATE\SALMETEROL XINAFOATE [Concomitant]
     Active Substance: FLUTICASONE FUROATE\SALMETEROL XINAFOATE
     Indication: Product used for unknown indication
     Dosage: 1 DOSAGE FORM, BID (IN THE MORNING AFTERNOON)
  4. FLUTICASONE [Concomitant]
     Active Substance: FLUTICASONE
     Dosage: 1 DOSAGE FORM, BID (SPRAY) (IN THE MORNING AND IN THE AFTERNOON
  5. VITAMIN D [Concomitant]
     Active Substance: VITAMIN D NOS
     Indication: Product used for unknown indication

REACTIONS (5)
  - Skin plaque [Unknown]
  - Vaginal infection [Unknown]
  - Dermatitis [Unknown]
  - Hypersensitivity [Not Recovered/Not Resolved]
  - Angioedema [Recovered/Resolved]

NARRATIVE: CASE EVENT DATE: 20250714
